FAERS Safety Report 22730420 (Version 2)
Quarter: 2024Q2

REPORT INFORMATION
  Report Type: Spontaneous
  Country: CA (occurrence: CA)
  Receive Date: 20230720
  Receipt Date: 20240413
  Transmission Date: 20240716
  Serious: Yes (Other)
  Sender: FDA-Public Use
  Company Number: CA-ABBVIE-5326572

PATIENT
  Age: 73 Year
  Sex: Female

DRUGS (8)
  1. ACITRETIN [Suspect]
     Active Substance: ACITRETIN
     Indication: Drug eruption
     Route: 048
  2. PREDNISONE [Suspect]
     Active Substance: PREDNISONE
     Indication: Drug eruption
     Route: 065
  3. DUPILUMAB [Suspect]
     Active Substance: DUPILUMAB
     Indication: Dermatitis atopic
     Route: 058
  4. DUPILUMAB [Suspect]
     Active Substance: DUPILUMAB
     Indication: Dermatitis atopic
     Dosage: DOSAGE TEXT: FREQUENCY-1
     Route: 058
  5. ALITRETINOIN [Concomitant]
     Active Substance: ALITRETINOIN
     Indication: Drug eruption
     Route: 065
  6. BETAMETHASONE [Suspect]
     Active Substance: BETAMETHASONE\BETAMETHASONE DIPROPIONATE
     Indication: Drug eruption
     Route: 065
  7. TACROLIMUS [Suspect]
     Active Substance: TACROLIMUS
     Indication: Drug eruption
     Route: 065
  8. TACROLIMUS [Suspect]
     Active Substance: TACROLIMUS
     Indication: Drug eruption
     Route: 065

REACTIONS (2)
  - Drug eruption [Recovered/Resolved]
  - Drug ineffective [Recovered/Resolved]
